FAERS Safety Report 24763299 (Version 1)
Quarter: 2024Q4

REPORT INFORMATION
  Report Type: Spontaneous
  Country: US (occurrence: US)
  Receive Date: 20241222
  Receipt Date: 20241222
  Transmission Date: 20250115
  Serious: Yes (Life-Threatening, Hospitalization, Other)
  Sender: JOHNSON AND JOHNSON
  Company Number: US-JNJFOC-20241242148

PATIENT
  Age: 75 Year
  Sex: Female

DRUGS (35)
  1. BOSENTAN [Suspect]
     Active Substance: BOSENTAN
     Indication: Product used for unknown indication
     Route: 048
     Dates: start: 2024
  2. TREPROSTINIL SODIUM [Suspect]
     Active Substance: TREPROSTINIL SODIUM
     Indication: Pulmonary arterial hypertension
     Route: 058
     Dates: start: 2024
  3. TREPROSTINIL SODIUM [Suspect]
     Active Substance: TREPROSTINIL SODIUM
     Route: 058
     Dates: start: 20240719
  4. CONTRAVE [Concomitant]
     Active Substance: BUPROPION HYDROCHLORIDE\NALTREXONE HYDROCHLORIDE
  5. VITAMIN B12 [Concomitant]
     Active Substance: CYANOCOBALAMIN
  6. COLACE [Concomitant]
     Active Substance: DOCUSATE SODIUM
  7. MICONATATE [Concomitant]
     Active Substance: MICONAZOLE NITRATE\TOLNAFTATE
  8. ELIQUIS [Concomitant]
     Active Substance: APIXABAN
  9. PRAVASTATIN SODIUM [Concomitant]
     Active Substance: PRAVASTATIN SODIUM
  10. FOLIC ACID [Concomitant]
     Active Substance: FOLIC ACID
  11. ACETAMINOPHEN [Concomitant]
     Active Substance: ACETAMINOPHEN
  12. SODIUM CHLORIDE [Concomitant]
     Active Substance: SODIUM CHLORIDE
  13. LASIX [Concomitant]
     Active Substance: FUROSEMIDE
  14. JARDIANCE [Concomitant]
     Active Substance: EMPAGLIFLOZIN
  15. OPSUMIT [Concomitant]
     Active Substance: MACITENTAN
  16. PANTOPRAZOLE SODIUM [Concomitant]
     Active Substance: PANTOPRAZOLE SODIUM
  17. TRELEGY ELLIPTA [Concomitant]
     Active Substance: FLUTICASONE FUROATE\UMECLIDINIUM BROMIDE\VILANTEROL TRIFENATATE
  18. KETAMINE HYDROCHLORIDE [Concomitant]
     Active Substance: KETAMINE HYDROCHLORIDE
  19. LECITHIN [Concomitant]
     Active Substance: LECITHIN
  20. DOXYCYCLINE HYCLATE [Concomitant]
     Active Substance: DOXYCYCLINE HYCLATE
  21. SILDENAFIL [Concomitant]
     Active Substance: SILDENAFIL
  22. VITAMIN D3 [Concomitant]
     Active Substance: CHOLECALCIFEROL
  23. LOVENOX [Concomitant]
     Active Substance: ENOXAPARIN SODIUM
  24. MAGNESIUM [Concomitant]
     Active Substance: MAGNESIUM
  25. CLONIDINE HYDROCHLORIDE [Concomitant]
     Active Substance: CLONIDINE HYDROCHLORIDE
  26. KETOPROFEN [Concomitant]
     Active Substance: KETOPROFEN
  27. OXYGEN [Concomitant]
     Active Substance: OXYGEN
  28. LIDOCAINE HYDROCHLORIDE [Concomitant]
     Active Substance: LIDOCAINE HYDROCHLORIDE
  29. MIDODRINE HYDROCHLORIDE [Concomitant]
     Active Substance: MIDODRINE HYDROCHLORIDE
  30. AMITRIPTYLINE HYDROCHLORIDE [Concomitant]
     Active Substance: AMITRIPTYLINE HYDROCHLORIDE
  31. GABAPENTIN [Concomitant]
     Active Substance: GABAPENTIN
  32. POLOXAMER [Concomitant]
     Active Substance: POLOXAMER
  33. FERROUS SULFATE [Concomitant]
     Active Substance: FERROUS SULFATE
  34. LORATADINE [Concomitant]
     Active Substance: LORATADINE
  35. LEVOTHYROXINE SODIUM [Concomitant]
     Active Substance: LEVOTHYROXINE SODIUM

REACTIONS (3)
  - Atrial fibrillation [Unknown]
  - Full blood count decreased [Unknown]
  - Product prescribing issue [Unknown]

NARRATIVE: CASE EVENT DATE: 20240101
